FAERS Safety Report 5505273-X (Version None)
Quarter: 2007Q4

REPORT INFORMATION
  Report Type: 
  Country: None (occurrence: None)
  Receive Date: 20071030
  Receipt Date: 20070828
  Transmission Date: 20080405
  Serious: No
  Sender: FDA-Public Use
  Company Number: 266944

PATIENT
  Age: 72 Year
  Sex: Male

DRUGS (3)
  1. LEVEMIR [Suspect]
     Indication: INSULIN-REQUIRING TYPE II DIABETES MELLITUS
     Dosage: SUBCUTANEOUS
     Route: 058
     Dates: start: 20070701
  2. HUMALOG /00030501/ (INSULIN) [Concomitant]
  3. LEVEMIR [Suspect]

REACTIONS (1)
  - BLOOD GLUCOSE INCREASED [None]
